FAERS Safety Report 20592936 (Version 7)
Quarter: 2022Q3

REPORT INFORMATION
  Report Type: Spontaneous
  Country: US (occurrence: US)
  Receive Date: 20220315
  Receipt Date: 20220914
  Transmission Date: 20221027
  Serious: No
  Sender: FDA-Public Use
  Company Number: US-GLAXOSMITHKLINE-US2022AMR045535

PATIENT
  Age: 69 Year
  Sex: Female

DRUGS (2)
  1. ZEJULA [Suspect]
     Active Substance: NIRAPARIB
     Indication: Ovarian cancer
     Dosage: 300 MG, QD
     Dates: start: 20220228, end: 202208
  2. ZEJULA [Suspect]
     Active Substance: NIRAPARIB
     Indication: Breast cancer female

REACTIONS (14)
  - Amnesia [Unknown]
  - Headache [Unknown]
  - Abdominal pain upper [Unknown]
  - Fatigue [Not Recovered/Not Resolved]
  - Abdominal distension [Unknown]
  - Sleep disorder [Unknown]
  - Nausea [Unknown]
  - Carbohydrate antigen 125 increased [Not Recovered/Not Resolved]
  - Taste disorder [Unknown]
  - Vulvovaginal mycotic infection [Unknown]
  - Central nervous system lesion [Unknown]
  - Therapy cessation [Unknown]
  - Product dose omission issue [Unknown]
  - Off label use [Unknown]

NARRATIVE: CASE EVENT DATE: 20220310
